FAERS Safety Report 15881703 (Version 1)
Quarter: 2019Q1

REPORT INFORMATION
  Report Type: Spontaneous
  Country: US (occurrence: US)
  Receive Date: 20190128
  Receipt Date: 20190128
  Transmission Date: 20190417
  Serious: No
  Sender: FDA-Public Use
  Company Number: US-SA-2019SA020077

PATIENT
  Age: 63 Year
  Sex: Female
  Weight: 122.45 kg

DRUGS (22)
  1. DIPHENHYDRAMINE HYDROCHLORIDE. [Concomitant]
     Active Substance: DIPHENHYDRAMINE HYDROCHLORIDE
     Indication: ANAPHYLACTIC REACTION
     Dosage: 50 MG, AS DIRECTED
     Route: 042
     Dates: start: 20181220
  2. EFFEXOR [Concomitant]
     Active Substance: VENLAFAXINE HYDROCHLORIDE
     Dosage: 75 MG, BID
     Route: 048
     Dates: start: 20171220
  3. LIPITOR [Concomitant]
     Active Substance: ATORVASTATIN CALCIUM
     Dosage: 10 MG, QD
     Route: 048
     Dates: start: 20190118
  4. SYMBICORT [Concomitant]
     Active Substance: BUDESONIDE\FORMOTEROL FUMARATE DIHYDRATE
     Dosage: 2 DF, BID
     Route: 055
     Dates: start: 20171220
  5. PREDNISONE. [Concomitant]
     Active Substance: PREDNISONE
     Dosage: 1 DF, AS DIRECTED
     Route: 048
     Dates: start: 20171220
  6. COMBIVENT [Concomitant]
     Active Substance: ALBUTEROL SULFATE\IPRATROPIUM BROMIDE
     Dosage: 1 DF, Q6H
     Route: 055
     Dates: start: 20171220
  7. SODIUM CHLORIDE. [Concomitant]
     Active Substance: SODIUM CHLORIDE
     Indication: FLUSHING
     Dosage: 0.9 %, AS DIRECTED
     Route: 042
     Dates: start: 20181220
  8. CEPHAXIN [Concomitant]
     Dosage: 500 MG, QD
     Route: 048
     Dates: start: 20170120
  9. FABRAZYME [Suspect]
     Active Substance: AGALSIDASE BETA
     Indication: FABRY^S DISEASE
     Dosage: 120 MG, QOW
     Route: 041
     Dates: start: 20180818
  10. PLAVIX [Concomitant]
     Active Substance: CLOPIDOGREL BISULFATE
     Dosage: 75 MG, AS DIRECTED
     Route: 048
     Dates: start: 20190118
  11. SOLU-CORTEF [Concomitant]
     Active Substance: HYDROCORTISONE SODIUM SUCCINATE
     Dosage: 100 MG, AS DIRECTED
     Route: 042
     Dates: start: 20181220
  12. HEPARIN [Concomitant]
     Active Substance: HEPARIN SODIUM
     Indication: FLUSHING
     Dosage: 100 UN/ML, AS DIRECTED
     Route: 042
     Dates: start: 20181220
  13. NORMAL SALINE [Concomitant]
     Active Substance: SODIUM CHLORIDE
     Dosage: 0.9 %,AS DIRECTED
     Route: 042
     Dates: start: 20181220
  14. STERILE WATER [Concomitant]
     Active Substance: WATER
     Dosage: 24 ML, AS DIRECTED
     Route: 042
     Dates: start: 20181220
  15. ASPIRINE [Concomitant]
     Active Substance: ASPIRIN
     Dosage: 81 MG, QD
     Route: 048
     Dates: start: 20190118
  16. SINGULAIR [Concomitant]
     Active Substance: MONTELUKAST SODIUM
     Dosage: 10 MG, QD
     Route: 048
     Dates: start: 20171220
  17. TIKOSYN [Concomitant]
     Active Substance: DOFETILIDE
     Dosage: 500 UG, BID
     Route: 048
     Dates: start: 20171220
  18. POTASSIUM [Concomitant]
     Active Substance: POTASSIUM
     Dosage: 1 DF, QD
     Route: 048
     Dates: start: 20171220
  19. PRADAXA [Concomitant]
     Active Substance: DABIGATRAN ETEXILATE MESYLATE
     Dosage: 50 MG, BID
     Route: 048
     Dates: start: 20171220
  20. LASIX [Concomitant]
     Active Substance: FUROSEMIDE
     Dosage: 40 MG, QD
     Route: 048
     Dates: start: 20171220
  21. EPINEPHRINE. [Concomitant]
     Active Substance: EPINEPHRINE
     Dosage: 0.3 MG, AS DIRECTED
     Route: 030
     Dates: start: 20181220
  22. VALSARTAN. [Concomitant]
     Active Substance: VALSARTAN
     Dosage: UNK UNK, QD
     Route: 048
     Dates: start: 20171220

REACTIONS (1)
  - Catheterisation cardiac [Not Recovered/Not Resolved]

NARRATIVE: CASE EVENT DATE: 20190111
